FAERS Safety Report 9645007 (Version 1)
Quarter: 2013Q4

REPORT INFORMATION
  Report Type: Spontaneous
  Country: US (occurrence: US)
  Receive Date: 20131025
  Receipt Date: 20131025
  Transmission Date: 20140711
  Serious: No
  Sender: FDA-Public Use
  Company Number: US-PFIZER INC-2013302608

PATIENT
  Age: 57 Year
  Sex: Female
  Weight: 85.26 kg

DRUGS (5)
  1. LYRICA [Suspect]
     Indication: FIBROMYALGIA
     Dosage: 75 MG, 2X/DAY
     Route: 048
     Dates: start: 201309
  2. ATENOLOL [Concomitant]
     Indication: HYPERTENSION
     Dosage: UNK
  3. MELOXICAM [Concomitant]
     Indication: ARTHRALGIA
     Dosage: UNK
  4. CHOLESTYRAMINE [Concomitant]
     Indication: BLOOD CHOLESTEROL INCREASED
     Dosage: UNK
  5. ZOLOFT [Concomitant]
     Dosage: 25 MG, UNK

REACTIONS (1)
  - Somnolence [Recovered/Resolved]
